FAERS Safety Report 6930091-5 (Version None)
Quarter: 2010Q3

REPORT INFORMATION
  Report Type: 
  Country: None (occurrence: None)
  Receive Date: 20100817
  Receipt Date: 20100817
  Transmission Date: 20110219
  Serious: Yes (Hospitalization, Disabling, Other)
  Sender: FDA-Public Use
  Company Number: None

PATIENT
  Sex: Male
  Weight: 69.8539 kg

DRUGS (1)
  1. INVEGA [Suspect]
     Indication: DEPRESSION
     Dosage: 6 MG
     Dates: start: 20100601

REACTIONS (5)
  - DIZZINESS [None]
  - MALAISE [None]
  - SOMNOLENCE [None]
  - UNEVALUABLE EVENT [None]
  - VOMITING [None]
